FAERS Safety Report 25976895 (Version 2)
Quarter: 2025Q4

REPORT INFORMATION
  Report Type: Report from Study
  Country: EU (occurrence: EU)
  Receive Date: 20251030
  Receipt Date: 20251104
  Transmission Date: 20260118
  Serious: Yes (Congenital Anomaly)
  Sender: ABBVIE
  Company Number: EU-ABBVIE-6523453

PATIENT

DRUGS (2)
  1. SKYRIZI [Suspect]
     Active Substance: RISANKIZUMAB-RZAA
     Indication: Exposure via body fluid
     Route: 050
  2. SKYRIZI [Suspect]
     Active Substance: RISANKIZUMAB-RZAA
     Route: 064

REACTIONS (3)
  - Foetal disorder [Unknown]
  - Foetal exposure during pregnancy [Unknown]
  - Paternal exposure during pregnancy [Unknown]
